FAERS Safety Report 10052042 (Version 2)
Quarter: 2014Q2

REPORT INFORMATION
  Report Type: Spontaneous
  Country: DE (occurrence: DE)
  Receive Date: 20140402
  Receipt Date: 20140512
  Transmission Date: 20141212
  Serious: Yes (Other)
  Sender: FDA-Public Use
  Company Number: DE-JNJFOC-20140316974

PATIENT
  Age: 30 Year
  Sex: Female
  Weight: 62 kg

DRUGS (2)
  1. DOLORMIN MIGRANE ZAPFCHEN [Suspect]
     Indication: HEADACHE
     Route: 054
     Dates: start: 20140322, end: 20140322
  2. METOCLOPRAMID [Concomitant]
     Indication: NAUSEA
     Route: 048

REACTIONS (4)
  - Haematochezia [Recovered/Resolved]
  - Rectal haemorrhage [Recovered/Resolved]
  - Proctalgia [Recovered/Resolved]
  - Anorectal discomfort [Recovered/Resolved]
